FAERS Safety Report 8320876-5 (Version None)
Quarter: 2012Q2

REPORT INFORMATION
  Report Type: 
  Country: None (occurrence: None)
  Receive Date: 20120430
  Receipt Date: 20120423
  Transmission Date: 20120825
  Serious: Yes (Other)
  Sender: FDA-Public Use
  Company Number: PHHY2012JP030745

PATIENT
  Age: 88 Year
  Sex: Female

DRUGS (5)
  1. RISPERDAL [Suspect]
     Indication: HALLUCINATION, AUDITORY
     Dosage: 1 DF
     Route: 048
     Dates: start: 20120120, end: 20120405
  2. LAMISIL [Suspect]
     Indication: ONYCHOMYCOSIS
     Dosage: 125 MG
     Route: 048
     Dates: start: 20120203
  3. LUDIOMIL                        /00331902/ [Concomitant]
     Indication: DEPRESSION
     Dosage: 50 MG
     Route: 048
     Dates: start: 20120420
  4. RISPERDAL [Suspect]
     Indication: AGGRESSION
     Dosage: 0.5 DF
     Route: 048
     Dates: start: 20120406
  5. CEPHADOL [Concomitant]
     Indication: DEPRESSION
     Dates: start: 20120420

REACTIONS (2)
  - DEPRESSION [None]
  - DIZZINESS [None]
